FAERS Safety Report 8512891-3 (Version None)
Quarter: 2012Q3

REPORT INFORMATION
  Report Type: 
  Country: None (occurrence: None)
  Receive Date: 20120716
  Receipt Date: 20120710
  Transmission Date: 20120928
  Serious: Yes (Death, Hospitalization)
  Sender: FDA-Public Use
  Company Number: PHHY2012FR060375

PATIENT
  Age: 20 Year
  Sex: Female

DRUGS (5)
  1. TACROLIMUS [Interacting]
     Indication: IMMUNOSUPPRESSION
  2. OFLOXACIN [Concomitant]
  3. PREDNISOLONE [Interacting]
     Indication: IMMUNOSUPPRESSION
  4. ETHAMBUTOL HYDROCHLORIDE [Concomitant]
  5. RIFAMPICIN [Suspect]
     Indication: PULMONARY TUBERCULOSIS

REACTIONS (4)
  - DRUG INTERACTION [None]
  - SEPSIS [None]
  - SHOCK HAEMORRHAGIC [None]
  - LIVER TRANSPLANT REJECTION [None]
